APPROVED DRUG PRODUCT: MUPIROCIN
Active Ingredient: MUPIROCIN CALCIUM
Strength: EQ 2% BASE
Dosage Form/Route: CREAM;TOPICAL
Application: A213053 | Product #001 | TE Code: BX
Applicant: ALEMBIC PHARMACEUTICALS LTD
Approved: Nov 16, 2021 | RLD: No | RS: No | Type: RX